FAERS Safety Report 24742808 (Version 3)
Quarter: 2025Q1

REPORT INFORMATION
  Report Type: Spontaneous
  Country: US (occurrence: US)
  Receive Date: 20241217
  Receipt Date: 20250114
  Transmission Date: 20250408
  Serious: Yes (Hospitalization, Other)
  Sender: PFIZER
  Company Number: US-PFIZER INC-202400325345

PATIENT
  Sex: Female
  Weight: 80 kg

DRUGS (4)
  1. TIVDAK [Suspect]
     Active Substance: TISOTUMAB VEDOTIN-TFTV
     Indication: Cervix carcinoma recurrent
     Dosage: 0.9 MG/KG (75 MG), EVERY 3 WEEKS
     Route: 041
     Dates: start: 20241205
  2. TIVDAK [Suspect]
     Active Substance: TISOTUMAB VEDOTIN-TFTV
     Indication: Cervix cancer metastatic
  3. ROSUVASTATIN [Concomitant]
     Active Substance: ROSUVASTATIN
     Dosage: 20 MG, NIGHTLY
  4. TROSPIUM [Concomitant]
     Active Substance: TROSPIUM
     Dosage: 20 MG, 2X/DAY

REACTIONS (1)
  - Cystitis haemorrhagic [Recovering/Resolving]

NARRATIVE: CASE EVENT DATE: 20241207
